FAERS Safety Report 19749721 (Version 1)
Quarter: 2021Q3

REPORT INFORMATION
  Report Type: Spontaneous
  Country: JP (occurrence: JP)
  Receive Date: 20210826
  Receipt Date: 20210826
  Transmission Date: 20211014
  Serious: Yes (Hospitalization)
  Sender: FDA-Public Use
  Company Number: JP-EISAI MEDICAL RESEARCH-EC-2021-098220

PATIENT
  Age: 63 Year
  Sex: Female
  Weight: 50 kg

DRUGS (14)
  1. FEBURIC [Concomitant]
     Active Substance: FEBUXOSTAT
     Indication: PRODUCT USED FOR UNKNOWN INDICATION
     Dosage: DOSE AND FREQUENCY UNKNOWN
     Route: 048
     Dates: start: 20210213, end: 20210617
  2. E KEPPRA [Concomitant]
     Active Substance: LEVETIRACETAM
     Indication: PRODUCT USED FOR UNKNOWN INDICATION
     Dosage: DOSE AND FREQUENCY UNKNOWN
     Route: 048
     Dates: end: 20210617
  3. FYCOMPA [Suspect]
     Active Substance: PERAMPANEL
     Indication: EPILEPSY
     Route: 048
     Dates: start: 20210525, end: 20210531
  4. FYCOMPA [Suspect]
     Active Substance: PERAMPANEL
     Route: 048
     Dates: start: 20210622, end: 20210625
  5. FYCOMPA [Suspect]
     Active Substance: PERAMPANEL
     Route: 048
     Dates: start: 20210626, end: 20210703
  6. FERROUS SULFATE. [Concomitant]
     Active Substance: FERROUS SULFATE
     Dosage: DOSE AND FREQUENCY UNKNOWN
     Route: 048
     Dates: start: 20210622
  7. FEBURIC [Concomitant]
     Active Substance: FEBUXOSTAT
     Dates: start: 20210622
  8. FERROUS SULFATE. [Concomitant]
     Active Substance: FERROUS SULFATE
     Indication: PRODUCT USED FOR UNKNOWN INDICATION
     Dosage: DOSE AND FREQUENCY UNKNOWN
     Route: 048
     Dates: start: 20210218, end: 20210617
  9. FYCOMPA [Suspect]
     Active Substance: PERAMPANEL
     Route: 048
     Dates: start: 20210601, end: 20210617
  10. TSUMURA SHAKUYAKUKANZOTO EXTRACT GRANULES FOR ETHICAL USE [Concomitant]
     Active Substance: HERBALS
     Route: 048
     Dates: start: 20210622
  11. E KEPPRA [Concomitant]
     Active Substance: LEVETIRACETAM
     Dates: start: 20210622
  12. MIRCERA [Concomitant]
     Active Substance: METHOXY POLYETHYLENE GLYCOL-EPOETIN BETA
     Indication: PRODUCT USED FOR UNKNOWN INDICATION
     Dosage: DOSE AND FREQUENCY UNKNOWN
     Route: 065
     Dates: start: 20210303
  13. TSUMURA SHAKUYAKUKANZOTO EXTRACT GRANULES FOR ETHICAL USE [Concomitant]
     Active Substance: HERBALS
     Indication: PRODUCT USED FOR UNKNOWN INDICATION
     Dosage: DOSE AND FREQUENCY UNKNOWN
     Route: 048
     Dates: end: 20210617
  14. MIKELAN [Concomitant]
     Active Substance: CARTEOLOL HYDROCHLORIDE
     Indication: PRODUCT USED FOR UNKNOWN INDICATION
     Dosage: DOSE AND FREQUENCY UNKNOWN
     Route: 065

REACTIONS (1)
  - Anger [Recovered/Resolved]

NARRATIVE: CASE EVENT DATE: 20210614
